FAERS Safety Report 10387499 (Version 1)
Quarter: 2014Q1

REPORT INFORMATION
  Report Type: Spontaneous
  Country: US (occurrence: None)
  Receive Date: 20140306
  Receipt Date: 20140306
  Transmission Date: 20141002
  Serious: Yes (Hospitalization)
  Sender: FDA-Public Use
  Company Number: 163-21880-13121308

PATIENT
  Age: 82 Year
  Sex: Female
  Weight: 53 kg

DRUGS (11)
  1. REVLIMID (LENALIDOMIDE) (10 MILLIGRAM, CAPSULES) [Suspect]
     Indication: PLASMA CELL MYELOMA
     Route: 048
     Dates: start: 201011
  2. FUROSEMIDE [Concomitant]
  3. PREDNISONE [Concomitant]
  4. KLOR-CON M20 (POTASSIUM CHLORIDE) [Concomitant]
  5. ALLOPURINOL [Concomitant]
  6. DIPHENOXYLATE/ATROPINE (LOMOTIL) [Concomitant]
  7. LEVOTHYROXINE [Concomitant]
  8. HYDROXYUREA (HYDROXYCARBAMIDE) [Concomitant]
  9. MULTIVITAMINS [Concomitant]
  10. CALCIUM + VITAMIN D (LEKOVIT CA) [Concomitant]
  11. ANUSOL HC (HYDROCORTISONE ACETATE) (OINTMENT) [Concomitant]

REACTIONS (3)
  - Intestinal obstruction [None]
  - Diarrhoea [None]
  - Pulmonary embolism [None]
